FAERS Safety Report 16815684 (Version 1)
Quarter: 2019Q3

REPORT INFORMATION
  Report Type: Spontaneous
  Country: US (occurrence: US)
  Receive Date: 20190917
  Receipt Date: 20190917
  Transmission Date: 20191005
  Serious: No
  Sender: FDA-Public Use
  Company Number: US-ALLERGAN-1911637US

PATIENT
  Age: 58 Year
  Sex: Female
  Weight: 55.33 kg

DRUGS (4)
  1. HUMIRA [Concomitant]
     Active Substance: ADALIMUMAB
     Indication: PSORIASIS
     Dosage: EVERY OTHER WEEK
     Route: 065
     Dates: start: 2004
  2. AMBIEN [Concomitant]
     Active Substance: ZOLPIDEM TARTRATE
     Indication: SLEEP DISORDER
     Dosage: UNK, QHS
     Route: 065
     Dates: start: 2009
  3. UNSPECIFIED INHALER [Concomitant]
     Active Substance: UNSPECIFIED INGREDIENT
     Indication: ASTHMA
     Dosage: UNK, PRN
  4. LINZESS [Suspect]
     Active Substance: LINACLOTIDE
     Indication: PURGING
     Dosage: ACTUAL: 145 MCG THREE TIMES A WEEK
     Route: 065
     Dates: start: 2017

REACTIONS (3)
  - Inappropriate schedule of product administration [Unknown]
  - Off label use [Unknown]
  - Drug ineffective for unapproved indication [Unknown]

NARRATIVE: CASE EVENT DATE: 2017
